FAERS Safety Report 7370719-1 (Version None)
Quarter: 2011Q1

REPORT INFORMATION
  Report Type: 
  Country: None (occurrence: None)
  Receive Date: 20110323
  Receipt Date: 20110302
  Transmission Date: 20110831
  Serious: Yes (Hospitalization)
  Sender: FDA-Public Use
  Company Number: IT-BAYER-2011-019690

PATIENT
  Sex: Male

DRUGS (4)
  1. BLOPRESS [Concomitant]
     Dosage: DAILY DOSE 16 MG
  2. ASPIRIN [Suspect]
     Indication: ARTERIOSCLEROSIS CORONARY ARTERY
     Dosage: 100 MG, QD
     Route: 048
     Dates: start: 20090501, end: 20110125
  3. TICLID [Suspect]
     Indication: ARTERIOSCLEROSIS CORONARY ARTERY
     Dosage: 250 MG, QD
     Route: 048
     Dates: start: 20090501, end: 20110125
  4. AULIN [Concomitant]
     Indication: BACK PAIN
     Dosage: UNK
     Route: 048

REACTIONS (1)
  - RECTAL HAEMORRHAGE [None]
